FAERS Safety Report 16737501 (Version 2)
Quarter: 2019Q3

REPORT INFORMATION
  Report Type: Report from Study
  Country: US (occurrence: US)
  Receive Date: 20190823
  Receipt Date: 20190912
  Transmission Date: 20191005
  Serious: Yes (Hospitalization)
  Sender: FDA-Public Use
  Company Number: US-BRISTOL-MYERS SQUIBB COMPANY-BMS-2016-087532

PATIENT
  Sex: Female

DRUGS (2)
  1. DASATINIB. [Suspect]
     Active Substance: DASATINIB
     Indication: PRODUCT USED FOR UNKNOWN INDICATION
     Dosage: 100 MG, QD DAILY
     Route: 048
  2. DASATINIB. [Suspect]
     Active Substance: DASATINIB
     Indication: CHRONIC MYELOID LEUKAEMIA
     Dosage: 100 MG, QD DAILY
     Route: 048
     Dates: start: 20130205

REACTIONS (7)
  - Tooth disorder [Unknown]
  - Eye swelling [Unknown]
  - Memory impairment [Unknown]
  - Gastrointestinal disorder [Unknown]
  - Nervousness [Unknown]
  - Toothache [Unknown]
  - Peripheral swelling [Unknown]
